FAERS Safety Report 8603500-3 (Version None)
Quarter: 2012Q3

REPORT INFORMATION
  Report Type: 
  Country: None (occurrence: None)
  Receive Date: 20120806
  Receipt Date: 20120724
  Transmission Date: 20120928
  Serious: Yes (Other)
  Sender: FDA-Public Use
  Company Number: AUR-APL-2012-03303

PATIENT
  Age: 54 Year
  Sex: Female

DRUGS (2)
  1. METFFORMIN HYDROCHLORIDE [Suspect]
     Indication: DIABETES MELLITUS
     Dosage: 500 MG (500 MG, 1 N 1 D),ORAL
     Route: 048
     Dates: start: 20120718
  2. VITAMIN D (ERCOCALCIFEROL) [Concomitant]

REACTIONS (2)
  - ABDOMINAL PAIN UPPER [None]
  - DIARRHOEA [None]
